FAERS Safety Report 9149493 (Version 1)
Quarter: 2013Q1

REPORT INFORMATION
  Report Type: Spontaneous
  Country: IT (occurrence: None)
  Receive Date: 20130131
  Receipt Date: 20130131
  Transmission Date: 20140127
  Serious: Yes (Other)
  Sender: FDA-Public Use
  Company Number: 2013-015

PATIENT
  Age: 64 Year
  Sex: Male

DRUGS (10)
  1. PRIALT (ZICONOTIDE) INTRATHECAL INFUSION [Suspect]
     Indication: PAIN
     Dosage: MCG, ONCE/HOUR,
     Route: 037
     Dates: start: 20120807, end: 20120810
  2. MORPHINE SULFATE [Suspect]
     Indication: PAIN
     Dosage: MCG, ONCE/HOUR,
     Route: 037
     Dates: start: 20120807, end: 20120810
  3. LANSOPRAZOLE (LANSOPRAZOLE) [Concomitant]
  4. METFORMIN HCL (METFORMIN HYDROCHLORIDE) [Concomitant]
  5. KARVEZIDE (HYDROCHLOROTHIAZIDE, IRBESARTAN) [Concomitant]
  6. FLUOXEREN (FLUOXETINE HYDROCHLORIDE) [Concomitant]
  7. TOTALIP (ATORVASTATIN CALCIUM) [Concomitant]
  8. DELTACORTENE (PREDNISONE) [Concomitant]
  9. ZOMETA (ZOLEDRONIC ACID) [Concomitant]
  10. SOLOSA (GLIMEPIRIDE) [Concomitant]

REACTIONS (3)
  - Confusional state [None]
  - Vomiting [None]
  - Petit mal epilepsy [None]
